FAERS Safety Report 8579983-4 (Version None)
Quarter: 2012Q3

REPORT INFORMATION
  Report Type: 
  Country: None (occurrence: None)
  Receive Date: 20120808
  Receipt Date: 20120806
  Transmission Date: 20120928
  Serious: No
  Sender: FDA-Public Use
  Company Number: US-PFIZER INC-2012191223

PATIENT
  Age: 60 Year
  Sex: Female
  Weight: 52.154 kg

DRUGS (2)
  1. LYRICA [Suspect]
     Indication: FIBROMYALGIA
     Dosage: 50 MG, 2X/DAY
     Route: 048
     Dates: start: 20120501, end: 20120709
  2. LYRICA [Suspect]
     Dosage: 50 MG, 4X/DAY
     Route: 048
     Dates: start: 20120709

REACTIONS (4)
  - DRUG INEFFECTIVE [None]
  - WEIGHT INCREASED [None]
  - SLUGGISHNESS [None]
  - CONSTIPATION [None]
